FAERS Safety Report 11067340 (Version 2)
Quarter: 2015Q2

REPORT INFORMATION
  Report Type: Spontaneous
  Country: US (occurrence: US)
  Receive Date: 20150426
  Receipt Date: 20150507
  Transmission Date: 20150821
  Serious: No
  Sender: FDA-Public Use
  Company Number: US-009507513-1504USA017936

PATIENT
  Sex: Male

DRUGS (1)
  1. SYLATRON [Suspect]
     Active Substance: PEGINTERFERON ALFA-2B
     Dosage: UNK
     Dates: start: 20141002

REACTIONS (9)
  - Eating disorder [Unknown]
  - Product colour issue [Unknown]
  - Diarrhoea [Not Recovered/Not Resolved]
  - Poor quality drug administered [Unknown]
  - Weight decreased [Not Recovered/Not Resolved]
  - Hepatic enzyme increased [Unknown]
  - Nausea [Not Recovered/Not Resolved]
  - Abdominal pain upper [Not Recovered/Not Resolved]
  - Rash [Not Recovered/Not Resolved]
